FAERS Safety Report 5048180-1 (Version None)
Quarter: 2006Q3

REPORT INFORMATION
  Report Type: 
  Country: None (occurrence: None)
  Receive Date: 20060711
  Receipt Date: 20060523
  Transmission Date: 20061208
  Serious: Yes (Hospitalization)
  Sender: FDA-Public Use
  Company Number: DE-ROCHE-449034

PATIENT
  Age: 71 Year
  Sex: Male
  Weight: 68 kg

DRUGS (5)
  1. INTERFERON ALFA-2A [Suspect]
     Indication: METASTATIC RENAL CELL CARCINOMA
     Route: 058
     Dates: start: 20051006, end: 20060522
  2. AVASTIN [Suspect]
     Indication: METASTATIC RENAL CELL CARCINOMA
     Route: 042
     Dates: start: 20051006, end: 20060522
  3. PARACETAMOL [Concomitant]
     Dates: start: 20051006, end: 20060515
  4. ATACAND [Concomitant]
     Dates: start: 20031201, end: 20060115
  5. ZOMETA [Concomitant]
     Dates: start: 20050808, end: 20060418

REACTIONS (1)
  - GLIOSIS [None]
